FAERS Safety Report 23676918 (Version 1)
Quarter: 2024Q1

REPORT INFORMATION
  Report Type: Spontaneous
  Country: SE (occurrence: SE)
  Receive Date: 20240327
  Receipt Date: 20240327
  Transmission Date: 20240409
  Serious: Yes (Other)
  Sender: FDA-Public Use
  Company Number: None

PATIENT

DRUGS (15)
  1. DESMOPRESSIN ACETATE [Suspect]
     Active Substance: DESMOPRESSIN ACETATE
     Indication: Nocturia
     Dosage: 240 UG, 1 TIME DAILY
     Route: 048
     Dates: end: 20240305
  2. DIMETHICONE [Concomitant]
     Active Substance: DIMETHICONE
     Dosage: 200 MG, EVERY 8 HOURS
     Route: 048
     Dates: start: 20240118
  3. MELLOZZAN [Concomitant]
     Dosage: 3 MG, 1 TIME DAILY
     Route: 048
     Dates: start: 20240206
  4. ACETYLCYSTEINE [Concomitant]
     Active Substance: ACETYLCYSTEINE
     Dosage: 200 MG, EVERY 8 HOURS
     Route: 048
     Dates: start: 20240118
  5. MIRTAZAPINE [Concomitant]
     Active Substance: MIRTAZAPINE
     Dosage: 15 MG, 1 TIME DAILY
     Route: 048
     Dates: start: 20220510
  6. LAKTULOS MEDA [Concomitant]
     Dosage: 20 ML, EVERY 12 HOURS
     Route: 048
     Dates: start: 20231109
  7. JARDIANCE [Concomitant]
     Active Substance: EMPAGLIFLOZIN
     Dosage: 10 MG, 1 TIME DAILY
     Route: 048
     Dates: start: 20230206
  8. BISOPROLOL [Concomitant]
     Active Substance: BISOPROLOL\BISOPROLOL FUMARATE
     Dosage: 2.5 MG, 1 TIME DAILY
     Route: 048
     Dates: start: 20210914
  9. DIGOXIN [Concomitant]
     Active Substance: DIGOXIN
     Dosage: 0.13 MG, 1 TIME DAILY
     Route: 048
     Dates: start: 20210629
  10. ISOMEX [Concomitant]
     Dosage: 30 MG, 1 TIME DAILY
     Route: 048
     Dates: start: 20230115
  11. CYANOCOBALAMIN [Concomitant]
     Active Substance: CYANOCOBALAMIN
     Dosage: 1 MG, 1 TIME DAILY
     Route: 048
     Dates: start: 20210629
  12. PARACETAMOL NET [Concomitant]
     Dosage: 1000 MG, EVERY 8 HOURS
     Route: 048
     Dates: start: 20210629
  13. CALCIUM CARBONATE\CHOLECALCIFEROL [Concomitant]
     Active Substance: CALCIUM CARBONATE\CHOLECALCIFEROL
     Dosage: 1 DOSAGE FORM, EVERY 12 HOURS
     Route: 048
     Dates: start: 20240220
  14. ELIQUIS [Concomitant]
     Active Substance: APIXABAN
     Dosage: 2.5 MG, EVERY 12 HOURS
     Route: 048
     Dates: start: 20210629
  15. FERROUS SULFATE [Concomitant]
     Active Substance: FERROUS SULFATE
     Dosage: 100 MG, 1 TIME DAILY
     Route: 048
     Dates: start: 20240206

REACTIONS (4)
  - Pallor [Recovered/Resolved]
  - Chest pain [Recovered/Resolved]
  - Lethargy [Recovered/Resolved]
  - Fatigue [Recovered/Resolved]

NARRATIVE: CASE EVENT DATE: 20240201
